FAERS Safety Report 18062366 (Version 1)
Quarter: 2020Q3

REPORT INFORMATION
  Report Type: Spontaneous
  Country: GB (occurrence: GB)
  Receive Date: 20200724
  Receipt Date: 20200724
  Transmission Date: 20201103
  Serious: Yes (Hospitalization)
  Sender: FDA-Public Use
  Company Number: GB-AUROBINDO-AUR-APL-2020-036085

PATIENT
  Age: 83 Year
  Sex: Male

DRUGS (8)
  1. BACLOFEN. [Concomitant]
     Active Substance: BACLOFEN
     Indication: PRODUCT USED FOR UNKNOWN INDICATION
     Dosage: 10 MILLIGRAM, ONCE A DAY (5MG/5ML)
     Route: 048
  2. HYDROMOL [Concomitant]
     Indication: PRODUCT USED FOR UNKNOWN INDICATION
     Dosage: APPLY (AS NECESSARY)
     Route: 061
  3. DOVOBET [Concomitant]
     Active Substance: BETAMETHASONE\CALCIPOTRIENE
     Indication: PRODUCT USED FOR UNKNOWN INDICATION
     Dosage: APPLY AT PER DERM.
     Route: 061
  4. CASSIA SENNA [Concomitant]
     Active Substance: HERBALS\SENNOSIDES
     Indication: PRODUCT USED FOR UNKNOWN INDICATION
     Dosage: 7.5 MILLIGRAM (ONE OR TWO AT NIGHT AS NEEDED)
     Route: 048
  5. AMITRIPTYLINE [Concomitant]
     Active Substance: AMITRIPTYLINE
     Indication: PRODUCT USED FOR UNKNOWN INDICATION
     Dosage: 10 MILLIGRAM, ONCE A DAY (NIGHT)
     Route: 048
  6. CLOPIDOGREL [Suspect]
     Active Substance: CLOPIDOGREL BISULFATE
     Indication: PRODUCT USED FOR UNKNOWN INDICATION
     Dosage: 75 MILLIGRAM, ONCE A DAY (MORNING)
     Route: 048
  7. ATORVASTATIN [Concomitant]
     Active Substance: ATORVASTATIN
     Indication: PRODUCT USED FOR UNKNOWN INDICATION
     Dosage: 40 MILLIGRAM, ONCE A DAY (NIGHT)
     Route: 048
  8. WARFARIN [Suspect]
     Active Substance: WARFARIN
     Indication: PRODUCT USED FOR UNKNOWN INDICATION
     Dosage: 1MG ONCE DAILY EXCEPT WEDNESDAY AND SUNDAY WHERE 2MG ONCE DAILY
     Route: 048
     Dates: end: 20200407

REACTIONS (1)
  - Haematuria [Recovering/Resolving]

NARRATIVE: CASE EVENT DATE: 20200407
